FAERS Safety Report 5298057-1 (Version None)
Quarter: 2007Q2

REPORT INFORMATION
  Report Type: 
  Country: None (occurrence: None)
  Receive Date: 20070416
  Receipt Date: 20070411
  Transmission Date: 20071010
  Serious: Yes (Other)
  Sender: FDA-Public Use
  Company Number: US-JNJFOC-20070402448

PATIENT
  Sex: Female

DRUGS (5)
  1. MOTRIN [Suspect]
     Indication: ARTHRALGIA
     Route: 048
  2. PLAVIX [Suspect]
     Indication: CEREBROVASCULAR ACCIDENT
     Route: 048
  3. ULTRAM [Concomitant]
     Indication: ARTHRALGIA
  4. DARVOCET [Concomitant]
     Indication: ARTHRALGIA
  5. EZETIMIBE [Concomitant]
     Route: 048

REACTIONS (5)
  - BLOOD URINE PRESENT [None]
  - CAROTID ARTERY OCCLUSION [None]
  - GASTRIC HAEMORRHAGE [None]
  - HAEMATOCHEZIA [None]
  - RASH PAPULAR [None]
